FAERS Safety Report 23579042 (Version 3)
Quarter: 2024Q1

REPORT INFORMATION
  Report Type: Spontaneous
  Country: IT (occurrence: IT)
  Receive Date: 20240229
  Receipt Date: 20240306
  Transmission Date: 20240410
  Serious: Yes (Hospitalization, Other)
  Sender: FDA-Public Use
  Company Number: None

PATIENT
  Age: 49 Year
  Sex: Male

DRUGS (2)
  1. ADALIMUMAB [Suspect]
     Active Substance: ADALIMUMAB\ISOPROPYL ALCOHOL
     Indication: Psoriasis
     Dosage: UNK
     Route: 065
     Dates: end: 20200824
  2. ADALIMUMAB [Suspect]
     Active Substance: ADALIMUMAB\ISOPROPYL ALCOHOL
     Indication: Psoriatic arthropathy

REACTIONS (11)
  - Proteinuria [Recovered/Resolved]
  - Renal failure [Recovered/Resolved]
  - Vasculitis [Recovered/Resolved]
  - Glomerulonephritis [Recovered/Resolved]
  - Hypertension [Recovered/Resolved]
  - Weight increased [Recovered/Resolved]
  - Oedema [Recovered/Resolved]
  - Henoch-Schonlein purpura [Recovered/Resolved]
  - Anuria [Recovered/Resolved]
  - Device related infection [Recovered/Resolved]
  - Psoriasis [Recovered/Resolved]

NARRATIVE: CASE EVENT DATE: 20191220
